FAERS Safety Report 5533966-7 (Version None)
Quarter: 2007Q4

REPORT INFORMATION
  Report Type: 
  Country: None (occurrence: None)
  Receive Date: 20071129
  Receipt Date: 20071107
  Transmission Date: 20080405
  Serious: Yes (Other)
  Sender: FDA-Public Use
  Company Number: 8028209

PATIENT
  Age: 7 Year
  Sex: Male
  Weight: 29.5 kg

DRUGS (3)
  1. EQUASYM [Suspect]
     Dosage: /D
  2. EQUASYM [Suspect]
     Dosage: 30 MG/D
     Dates: start: 20070130, end: 20070402
  3. EQUASYM [Suspect]
     Dates: start: 20070403

REACTIONS (1)
  - TIC [None]
